FAERS Safety Report 23617931 (Version 1)
Quarter: 2024Q1

REPORT INFORMATION
  Report Type: Spontaneous
  Country: BR (occurrence: BR)
  Receive Date: 20240311
  Receipt Date: 20240311
  Transmission Date: 20240410
  Serious: Yes (Other)
  Sender: FDA-Public Use
  Company Number: BR-BAYER-2024A030991

PATIENT
  Age: 47 Year
  Sex: Female

DRUGS (21)
  1. STIVARGA [Suspect]
     Active Substance: REGORAFENIB
     Indication: Metastases to lung
     Dosage: 80 MG, QD IN THE FIRST WEEK
     Dates: start: 202310
  2. STIVARGA [Suspect]
     Active Substance: REGORAFENIB
     Indication: Gastrointestinal carcinoma
     Dosage: 120 MG, QD IN THE SECOND WEEK
  3. STIVARGA [Suspect]
     Active Substance: REGORAFENIB
     Indication: Metastases to lung
     Dosage: 160 MG, QD IN THE THIRD WEEK
  4. STIVARGA [Suspect]
     Active Substance: REGORAFENIB
     Indication: Metastases to lung
     Dosage: 160 MG, QD
     Dates: end: 202312
  5. STIVARGA [Suspect]
     Active Substance: REGORAFENIB
     Indication: Metastases to lung
     Dosage: 120 MG, QD
  6. STIVARGA [Suspect]
     Active Substance: REGORAFENIB
     Indication: Metastases to lung
     Dosage: 160 MG, QD FOR THE FIRST WEEK
     Dates: start: 202402
  7. STIVARGA [Suspect]
     Active Substance: REGORAFENIB
     Indication: Metastases to lung
     Dosage: 120 MG, QD
  8. ENALAPRIL [Concomitant]
     Active Substance: ENALAPRIL
     Indication: Hypertension
     Dosage: 1 TABLET/12H
     Dates: start: 2022
  9. INDAPAMIDE [Concomitant]
     Active Substance: INDAPAMIDE
     Indication: Hypertension
     Dosage: 1 TABLET/DAY
     Dates: start: 202401
  10. GABAPENTIN [Concomitant]
     Active Substance: GABAPENTIN
     Indication: Neuropathy peripheral
     Dosage: 3 TABLETS/DAY
     Dates: start: 202311
  11. BUPROPION [Concomitant]
     Active Substance: BUPROPION
     Dosage: 1 TABLET/DAY
     Dates: start: 202303
  12. DULOXETINE [Concomitant]
     Active Substance: DULOXETINE
     Dosage: 1 TABLET/DAY
     Dates: start: 202303
  13. ATORVASTATIN [Concomitant]
     Active Substance: ATORVASTATIN
     Dosage: 1 TABLET/DAY
     Dates: start: 202402
  14. MIRTAZAPINE [Concomitant]
     Active Substance: MIRTAZAPINE
     Indication: Insomnia
     Dosage: 1 TABLET/DAY
     Dates: start: 2023
  15. ZOLPIDEM [Concomitant]
     Active Substance: ZOLPIDEM TARTRATE
     Indication: Insomnia
     Dosage: 1 TABLET/DAY
  16. PANTOPRAZOLE [Concomitant]
     Active Substance: PANTOPRAZOLE
     Indication: Gastric ulcer
     Dosage: 1 TABLET/DAY
     Dates: start: 202209
  17. UBIDECARENONE [Concomitant]
     Active Substance: UBIDECARENONE
     Indication: Fatigue
     Dosage: 1 CAPSULE/DAY
     Dates: start: 202310
  18. ASIAN GINSENG [Concomitant]
     Active Substance: ASIAN GINSENG
     Indication: Fatigue
     Dosage: 1 CAPSULE/DAY
     Dates: start: 202310
  19. HERBALS\PAULLINIA CUPANA SEED [Concomitant]
     Active Substance: HERBALS\PAULLINIA CUPANA SEED
     Indication: Fatigue
     Dosage: 1 TABLET/DAY
     Dates: start: 202310
  20. NYSTATIN [Concomitant]
     Active Substance: NYSTATIN
     Indication: Mucosal inflammation
     Dosage: ONCE EVERY 8 HOURS FOR 3 DAYS WHEN MUCOSITIS GETS STRONGER.
     Dates: start: 2022
  21. FLUCONAZOLE [Concomitant]
     Active Substance: FLUCONAZOLE
     Indication: Mucosal inflammation
     Dosage: 1 TABLET/DAY FOR 3 DAYS WHEN MUCOSITIS GETS STRONGER
     Dates: start: 2022

REACTIONS (15)
  - Gait inability [Recovering/Resolving]
  - Weight decreased [Recovering/Resolving]
  - Skin lesion [Recovering/Resolving]
  - Palmar-plantar erythrodysaesthesia syndrome [Not Recovered/Not Resolved]
  - Stomatitis [Not Recovered/Not Resolved]
  - Eating disorder [Not Recovered/Not Resolved]
  - Alopecia [Not Recovered/Not Resolved]
  - Fatigue [Not Recovered/Not Resolved]
  - Drug intolerance [None]
  - Feeling abnormal [None]
  - Weight decreased [None]
  - Cryptitis [Recovering/Resolving]
  - Proctitis [Recovering/Resolving]
  - Anal inflammation [Recovering/Resolving]
  - Off label use [None]

NARRATIVE: CASE EVENT DATE: 20231001
